FAERS Safety Report 8015908-8 (Version None)
Quarter: 2011Q4

REPORT INFORMATION
  Report Type: 
  Country: None (occurrence: None)
  Receive Date: 20111230
  Receipt Date: 20111221
  Transmission Date: 20120403
  Serious: Yes (Death)
  Sender: FDA-Public Use
  Company Number: HU-SANOFI-AVENTIS-2011SA082437

PATIENT
  Age: 71 Year
  Sex: Male
  Weight: 62 kg

DRUGS (2)
  1. INSULIN GLARGINE [Suspect]
     Indication: DIABETES MELLITUS
     Dates: start: 20101213
  2. APIDRA [Concomitant]
     Dates: start: 20101213

REACTIONS (1)
  - SUDDEN DEATH [None]
